FAERS Safety Report 5493432-4 (Version None)
Quarter: 2007Q4

REPORT INFORMATION
  Report Type: 
  Country: None (occurrence: None)
  Receive Date: 20071019
  Receipt Date: 20071010
  Transmission Date: 20080405
  Serious: Yes (Other)
  Sender: FDA-Public Use
  Company Number: 2007330981

PATIENT
  Age: 23 Year
  Sex: Female

DRUGS (1)
  1. LISTERINE (MENTHOL, METHYL SALICYLATE, EUCALYPTOL, THYMOL) [Suspect]
     Indication: DENTAL DISORDER PROPHYLAXIS
     Dosage: ORAL
     Route: 048

REACTIONS (3)
  - CYSTITIS NONINFECTIVE [None]
  - NEPHROLITHIASIS [None]
  - ORAL DISCOMFORT [None]
